FAERS Safety Report 18938126 (Version 1)
Quarter: 2021Q1

REPORT INFORMATION
  Report Type: Spontaneous
  Country: US (occurrence: US)
  Receive Date: 20210224
  Receipt Date: 20210224
  Transmission Date: 20210420
  Serious: Yes (Hospitalization)
  Sender: FDA-Public Use
  Company Number: None

PATIENT
  Age: 64 Year
  Sex: Female
  Weight: 74.8 kg

DRUGS (1)
  1. BAMLANIVIMAB. [Suspect]
     Active Substance: BAMLANIVIMAB
     Indication: COVID-19
     Dosage: ?          OTHER FREQUENCY:ONCE;?
     Route: 042
     Dates: start: 20210107, end: 20210107

REACTIONS (7)
  - Presyncope [None]
  - Pyrexia [None]
  - Dyspnoea [None]
  - Hypotension [None]
  - Myalgia [None]
  - Cough [None]
  - Chills [None]

NARRATIVE: CASE EVENT DATE: 20210115
